FAERS Safety Report 20563678 (Version 1)
Quarter: 2022Q1

REPORT INFORMATION
  Report Type: Spontaneous
  Country: JO (occurrence: JO)
  Receive Date: 20220308
  Receipt Date: 20220308
  Transmission Date: 20220423
  Serious: Yes (Life-Threatening, Other)
  Sender: FDA-Public Use
  Company Number: JO-ENDO PHARMACEUTICALS INC-2022-001132

PATIENT
  Age: 20 Year
  Sex: Male

DRUGS (2)
  1. COLY-MYCIN M [Suspect]
     Active Substance: COLISTIMETHATE SODIUM
     Indication: Escherichia bacteraemia
     Dosage: UNK UNKNOWN, UNKNOWN
     Route: 042
  2. COLY-MYCIN M [Suspect]
     Active Substance: COLISTIMETHATE SODIUM
     Dosage: UNK UNKNOWN, UNKNOWN
     Route: 042

REACTIONS (1)
  - Type IV hypersensitivity reaction [Recovered/Resolved]
